FAERS Safety Report 8328458-6 (Version None)
Quarter: 2012Q2

REPORT INFORMATION
  Report Type: 
  Country: None (occurrence: None)
  Receive Date: 20120502
  Receipt Date: 20120502
  Transmission Date: 20120825
  Serious: Yes (Life-Threatening)
  Sender: FDA-Public Use
  Company Number: None

PATIENT
  Age: 79 Year
  Sex: Male
  Weight: 113 kg

DRUGS (1)
  1. XARELTO [Suspect]

REACTIONS (1)
  - GASTROINTESTINAL HAEMORRHAGE [None]
